FAERS Safety Report 6576429-2 (Version None)
Quarter: 2010Q1

REPORT INFORMATION
  Report Type: 
  Country: None (occurrence: None)
  Receive Date: 20100210
  Receipt Date: 20100201
  Transmission Date: 20100710
  Serious: Yes (Hospitalization, Other)
  Sender: FDA-Public Use
  Company Number: PHEH2009US14738

PATIENT
  Sex: Male

DRUGS (2)
  1. EXJADE [Suspect]
     Indication: MYELODYSPLASTIC SYNDROME
     Dosage: 1250 MG, QD
     Route: 048
     Dates: start: 20080101
  2. EXJADE [Suspect]
     Indication: ANAEMIA

REACTIONS (4)
  - BRAIN OEDEMA [None]
  - DRAIN REMOVAL [None]
  - FALL [None]
  - SUBDURAL HAEMATOMA [None]
